FAERS Safety Report 17137859 (Version 1)
Quarter: 2019Q4

REPORT INFORMATION
  Report Type: Spontaneous
  Country: US (occurrence: US)
  Receive Date: 20191118
  Receipt Date: 20191118
  Transmission Date: 20200122
  Serious: No
  Sender: FDA-Public Use
  Company Number: None

PATIENT
  Age: 72 Year
  Sex: Female
  Weight: 49.9 kg

DRUGS (1)
  1. ALPHAGAN P [Suspect]
     Active Substance: BRIMONIDINE TARTRATE
     Indication: GLAUCOMA
     Dosage: ?          QUANTITY:1 GTT DROP(S);?
     Route: 031
     Dates: start: 201910, end: 20191115

REACTIONS (3)
  - Instillation site irritation [None]
  - Product quality issue [None]
  - Growth of eyelashes [None]

NARRATIVE: CASE EVENT DATE: 20191115
